FAERS Safety Report 18333287 (Version 2)
Quarter: 2020Q4

REPORT INFORMATION
  Report Type: Report from Study
  Country: KR (occurrence: KR)
  Receive Date: 20201001
  Receipt Date: 20201015
  Transmission Date: 20210113
  Serious: Yes (Hospitalization)
  Sender: FDA-Public Use
  Company Number: KR-CELLTRION INC.-2020KR028129

PATIENT

DRUGS (11)
  1. HERZUMA [Suspect]
     Active Substance: TRASTUZUMAB-PKRB
     Indication: HER2 POSITIVE BREAST CANCER
     Dosage: 349 MG (1ST), EVERY 3 WEEKS
     Route: 042
     Dates: start: 20200514
  2. CARBOPLATIN. [Concomitant]
     Active Substance: CARBOPLATIN
     Indication: HER2 POSITIVE BREAST CANCER
     Dosage: 6 ACU, EVERY 3 WEEKS
     Route: 042
     Dates: start: 20200422, end: 20200806
  3. GASTER [Concomitant]
     Active Substance: FAMOTIDINE
     Indication: PREMEDICATION
     Dosage: 1 AMP, EVERY 3 WEEKS
     Route: 042
     Dates: start: 20200514, end: 20200806
  4. CYCLOPHOSPHAMIDE. [Concomitant]
     Active Substance: CYCLOPHOSPHAMIDE
     Indication: HER2 POSITIVE BREAST CANCER
     Dosage: 600 MG/M2, EVERY 3 WEEKS
     Route: 042
     Dates: start: 20191219, end: 20200220
  5. PHENIRAMINE [Concomitant]
     Active Substance: PHENIRAMINE
     Indication: PREMEDICATION
     Dosage: 1 AMP, EVERY 3 WEEKS
     Route: 042
     Dates: start: 20200514, end: 20200806
  6. MECKOOL [Concomitant]
     Indication: PROPHYLAXIS OF NAUSEA AND VOMITING
     Dosage: 1 AMP, EVERY 3 WEEKS
     Route: 042
     Dates: start: 20200514, end: 20200806
  7. SYNTHYROXINE [Concomitant]
     Active Substance: LEVOTHYROXINE SODIUM
     Indication: THYROIDECTOMY
     Dosage: 1.5 TAB, QD
     Route: 048
     Dates: start: 2007
  8. HERZUMA [Suspect]
     Active Substance: TRASTUZUMAB-PKRB
     Dosage: 349 MG (6TH), EVERY 3 WEEKS
     Route: 042
     Dates: start: 20200831
  9. DOXORUBICIN [Concomitant]
     Active Substance: DOXORUBICIN
     Indication: HER2 POSITIVE BREAST CANCER
     Dosage: 60 MG/M2, EVERY 3 WEEKS
     Route: 042
     Dates: start: 20191219, end: 20200220
  10. DOCETAXEL. [Concomitant]
     Active Substance: DOCETAXEL
     Indication: HER2 POSITIVE BREAST CANCER
     Dosage: 75 MG/M2, EVERY 3 WEEKS
     Route: 042
     Dates: start: 20200422, end: 20200806
  11. DEXAMETHASONE. [Concomitant]
     Active Substance: DEXAMETHASONE
     Indication: PREMEDICATION
     Dosage: 1 AMP, EVERY 3 WEEKS
     Route: 042
     Dates: start: 20200514, end: 20200806

REACTIONS (1)
  - Intestinal strangulation [Recovered/Resolved]

NARRATIVE: CASE EVENT DATE: 20200904
